FAERS Safety Report 21816488 (Version 2)
Quarter: 2023Q1

REPORT INFORMATION
  Report Type: Other
  Country: US (occurrence: None)
  Receive Date: 20230104
  Receipt Date: 20230220
  Transmission Date: 20230417
  Serious: Yes (Other)
  Sender: FDA-Public Use
  Company Number: US-ROCHE-2857330

PATIENT
  Age: 43 Year
  Sex: Female
  Weight: 59.020 kg

DRUGS (29)
  1. OCREVUS [Suspect]
     Active Substance: OCRELIZUMAB
     Indication: Relapsing multiple sclerosis
     Dosage: DATE OF TREATMENT-  24/DEC/2019, 24/JUN/2020,17/DEC/2020,  17/JUN/2021
     Route: 042
     Dates: start: 20191217
  2. OCREVUS [Suspect]
     Active Substance: OCRELIZUMAB
     Indication: Migraine without aura
     Route: 042
  3. OCREVUS [Suspect]
     Active Substance: OCRELIZUMAB
     Route: 042
  4. OCREVUS [Suspect]
     Active Substance: OCRELIZUMAB
     Dosage: LAST DOSE: 16/DEC/2021
     Route: 042
     Dates: start: 20191217
  5. SYNTHROID [Concomitant]
     Active Substance: LEVOTHYROXINE SODIUM
     Indication: Hypothyroidism
     Dosage: STARTED 30 SOME YEARS AGO ;ONGOING: YES
     Route: 048
  6. HYDROCHLOROTHIAZIDE\LISINOPRIL [Concomitant]
     Active Substance: HYDROCHLOROTHIAZIDE\LISINOPRIL
     Indication: Hypertension
     Dosage: 10 MG LISINOPRIL/12.5 MG HCTZ?STARTED 5 TO 8 YEARS AGO ;ONGOING: YES
     Route: 048
  7. BENADRYL [Concomitant]
     Active Substance: DIPHENHYDRAMINE HYDROCHLORIDE
     Dates: start: 20191217
  8. OXYCODONE [Concomitant]
     Active Substance: OXYCODONE
     Indication: Pain in extremity
     Dosage: STARTED ABOUT 15 YEARS AGO ON AND OFF ;ONGOING:YES
     Route: 048
  9. GABAPENTIN [Concomitant]
     Active Substance: GABAPENTIN
     Indication: Pain in extremity
     Dosage: STARTED 1.5 YEARS AGO ;ONGOING: YES
     Route: 048
  10. ACETAMINOPHEN [Concomitant]
     Active Substance: ACETAMINOPHEN
     Indication: Premedication
     Route: 048
  11. DIPHENHYDRAMINE [Concomitant]
     Active Substance: DIPHENHYDRAMINE
     Indication: Premedication
     Route: 042
  12. METHYLPREDNISOLONE [Concomitant]
     Active Substance: METHYLPREDNISOLONE
     Indication: Premedication
     Route: 042
  13. AJOVY [Concomitant]
     Active Substance: FREMANEZUMAB-VFRM
  14. AMITRIPTYLINE [Concomitant]
     Active Substance: AMITRIPTYLINE
     Route: 048
     Dates: start: 20200511
  15. BETAMETHASONE [Concomitant]
     Active Substance: BETAMETHASONE
     Route: 061
     Dates: start: 20200415
  16. BUTALBITAL [Concomitant]
     Active Substance: BUTALBITAL
     Indication: Headache
     Route: 048
     Dates: start: 20230206
  17. BUTALBITAL [Concomitant]
     Active Substance: BUTALBITAL
     Indication: Migraine
  18. DIAZEPAM [Concomitant]
     Active Substance: DIAZEPAM
     Route: 048
  19. ELETRIPTAN [Concomitant]
     Active Substance: ELETRIPTAN
     Indication: Migraine
     Route: 048
  20. FREMANEZUMAB [Concomitant]
     Active Substance: FREMANEZUMAB
     Route: 058
  21. GABAPENTIN [Concomitant]
     Active Substance: GABAPENTIN
     Indication: Pain
     Route: 048
  22. SUMATRIPTAN [Concomitant]
     Active Substance: SUMATRIPTAN
     Indication: Headache
     Route: 058
     Dates: start: 20221019
  23. SUMATRIPTAN [Concomitant]
     Active Substance: SUMATRIPTAN
     Indication: Migraine
  24. OXYCODONE [Concomitant]
     Active Substance: OXYCODONE
     Dates: start: 20191001
  25. XTAMPZA ER [Concomitant]
     Active Substance: OXYCODONE
     Route: 048
     Dates: start: 20230111
  26. ONDANSETRON [Concomitant]
     Active Substance: ONDANSETRON
     Indication: Nausea
     Route: 048
  27. ONDANSETRON [Concomitant]
     Active Substance: ONDANSETRON
     Indication: Vomiting
  28. LISINOPRIL [Concomitant]
     Active Substance: LISINOPRIL
     Route: 048
     Dates: start: 20230201
  29. LEVOTHYROXINE [Concomitant]
     Active Substance: LEVOTHYROXINE
     Dosage: 25 MCG
     Route: 048

REACTIONS (29)
  - Pituitary tumour benign [Not Recovered/Not Resolved]
  - Diabetes mellitus [Unknown]
  - Nephrolithiasis [Unknown]
  - Therapeutic response shortened [Not Recovered/Not Resolved]
  - Pain in extremity [Not Recovered/Not Resolved]
  - Muscular weakness [Not Recovered/Not Resolved]
  - Fall [Unknown]
  - Skin discolouration [Recovered/Resolved]
  - Pain [Recovered/Resolved]
  - Visual impairment [Unknown]
  - Weight decreased [Unknown]
  - Temperature intolerance [Unknown]
  - Initial insomnia [Unknown]
  - Abscess [Not Recovered/Not Resolved]
  - Blood pressure fluctuation [Not Recovered/Not Resolved]
  - Memory impairment [Not Recovered/Not Resolved]
  - Septic shock [Not Recovered/Not Resolved]
  - Visual impairment [Not Recovered/Not Resolved]
  - Migraine [Not Recovered/Not Resolved]
  - Fatigue [Not Recovered/Not Resolved]
  - Depression [Not Recovered/Not Resolved]
  - Anxiety [Not Recovered/Not Resolved]
  - Hemiparesis [Not Recovered/Not Resolved]
  - Electrocardiogram abnormal [Unknown]
  - Back pain [Not Recovered/Not Resolved]
  - Blood potassium decreased [Unknown]
  - Blood alkaline phosphatase increased [Unknown]
  - Blood bilirubin decreased [Unknown]
  - Headache [Unknown]

NARRATIVE: CASE EVENT DATE: 20200901
